FAERS Safety Report 5315479-0 (Version None)
Quarter: 2007Q1

REPORT INFORMATION
  Report Type: 
  Country: None (occurrence: None)
  Receive Date: 20070130
  Receipt Date: 20061121
  Transmission Date: 20070707
  Serious: Yes (Other)
  Sender: FDA-Public Use
  Company Number: 150127USA

PATIENT
  Sex: Female

DRUGS (7)
  1. COPAXONE [Suspect]
     Indication: MULTIPLE SCLEROSIS
     Dosage: 20 MG (20 MG,1 IN 1 D), SUBCUTANEOUS
     Route: 058
     Dates: start: 20050501, end: 20060101
  2. MEDICATION FOR BOWELS [Suspect]
  3. FAMOTIDINE [Concomitant]
  4. TOLTERODINE [Concomitant]
  5. MIRTAZAPINE [Concomitant]
  6. MULTI-VITAMIN [Concomitant]
  7. AMOXICILLIN [Suspect]

REACTIONS (1)
  - ANAPHYLACTIC REACTION [None]
